FAERS Safety Report 7830117-0 (Version None)
Quarter: 2011Q4

REPORT INFORMATION
  Report Type: 
  Country: None (occurrence: None)
  Receive Date: 20111018
  Receipt Date: 20111005
  Transmission Date: 20120403
  Serious: Yes (Other)
  Sender: FDA-Public Use
  Company Number: 1000024080

PATIENT
  Age: 26 Year
  Sex: Female
  Weight: 60 kg

DRUGS (3)
  1. FOLIC ACID [Concomitant]
  2. CITALOPRAM HYDROBROMIDE [Suspect]
     Indication: DEPRESSION
     Dosage: 40 MG (40 MG,1 IN 1 D),ORAL ; 30 MG (30 MG,1 IN 1 D),ORAL
     Route: 048
     Dates: end: 20110610
  3. CITALOPRAM HYDROBROMIDE [Suspect]
     Indication: DEPRESSION
     Dosage: 40 MG (40 MG,1 IN 1 D),ORAL ; 30 MG (30 MG,1 IN 1 D),ORAL
     Route: 048
     Dates: start: 20100828

REACTIONS (3)
  - MATERNAL EXPOSURE DURING PREGNANCY [None]
  - PREGNANCY [None]
  - VENTOUSE EXTRACTION [None]
